FAERS Safety Report 13171494 (Version 2)
Quarter: 2017Q1

REPORT INFORMATION
  Report Type: Spontaneous
  Country: GB (occurrence: GB)
  Receive Date: 20170201
  Receipt Date: 20170207
  Transmission Date: 20170428
  Serious: Yes (Other)
  Sender: FDA-Public Use
  Company Number: GB-LEO PHARMA-244146

PATIENT
  Age: 54 Year
  Sex: Female

DRUGS (1)
  1. PICATO [Suspect]
     Active Substance: INGENOL MEBUTATE
     Indication: ACTINIC KERATOSIS
     Route: 061
     Dates: start: 20160808, end: 20160809

REACTIONS (7)
  - Application site scab [Unknown]
  - Incorrect drug administration duration [Unknown]
  - Application site hypersensitivity [Unknown]
  - Application site pain [Unknown]
  - Application site erythema [Unknown]
  - Eye swelling [Unknown]
  - Angioedema [Unknown]

NARRATIVE: CASE EVENT DATE: 20160808
